FAERS Safety Report 24374117 (Version 8)
Quarter: 2024Q4

REPORT INFORMATION
  Report Type: Report from Study
  Country: CH (occurrence: CH)
  Receive Date: 20240927
  Receipt Date: 20241126
  Transmission Date: 20250114
  Serious: Yes (Hospitalization, Other)
  Sender: BAXTER
  Company Number: CH-BAXTER-2024BAX022406

PATIENT
  Age: 75 Year
  Sex: Female
  Weight: 48.7 kg

DRUGS (42)
  1. CYCLOPHOSPHAMIDE [Suspect]
     Active Substance: CYCLOPHOSPHAMIDE
     Indication: Diffuse large B-cell lymphoma stage IV
     Dosage: 1125 MG, EVERY 3 WEEKS
     Route: 042
     Dates: start: 20240423, end: 20240903
  2. CYCLOPHOSPHAMIDE [Suspect]
     Active Substance: CYCLOPHOSPHAMIDE
     Dosage: 1140 MG, EVERY 3 WEEKS
     Route: 042
     Dates: start: 20240423, end: 20240625
  3. CYCLOPHOSPHAMIDE [Suspect]
     Active Substance: CYCLOPHOSPHAMIDE
     Dosage: 1139 MG, EVERY 3 WEEKS
     Route: 042
     Dates: start: 20240813
  4. DOXORUBICIN [Suspect]
     Active Substance: DOXORUBICIN
     Indication: Diffuse large B-cell lymphoma stage IV
     Dosage: 75 MG, EVERY 3 WEEKS
     Route: 042
     Dates: start: 20240423, end: 20240903
  5. DOXORUBICIN [Suspect]
     Active Substance: DOXORUBICIN
     Dosage: 76 MG, EVERY 3 WEEKS
     Route: 042
     Dates: start: 20240423, end: 20240625
  6. DOXORUBICIN [Suspect]
     Active Substance: DOXORUBICIN
     Dosage: 76 MG, EVERY 3 WEEKS
     Route: 042
     Dates: start: 20240813
  7. EPCORITAMAB [Suspect]
     Active Substance: EPCORITAMAB
     Indication: Diffuse large B-cell lymphoma stage IV
     Dosage: 48 MG C1 (STEP-UP), CYCLES 2 - 4 (21-DAY CYCLE, WEEKLY DOSE), C5 - 8 (21-DAY CYCLE, EVERY 3 WEEKS) P
     Route: 058
     Dates: start: 20240423
  8. EPCORITAMAB [Suspect]
     Active Substance: EPCORITAMAB
     Dosage: EVERY 1 WEEKS; 48 MG C1 (STEP-UP), CYCLES 2 - 4 (21-DAY CYCLE, WEEKLY DOSE), C5 - 8  (21-DAY CYCLE,
     Route: 058
     Dates: start: 20240813
  9. PREDNISONE [Suspect]
     Active Substance: PREDNISONE
     Indication: Diffuse large B-cell lymphoma stage IV
     Dosage: 100 MG DAILY C1-6, DAY 1-5, EVERY 1 DAYS
     Route: 048
     Dates: start: 20240423, end: 20240903
  10. PREDNISONE [Suspect]
     Active Substance: PREDNISONE
     Dosage: 100 MG C1-6, DAY 1-5, EVERY 1 DAYS
     Route: 048
     Dates: start: 20240813
  11. PREDNISONE [Suspect]
     Active Substance: PREDNISONE
     Dosage: UNK
     Route: 065
     Dates: start: 20240423, end: 20240817
  12. RITUXIMAB [Suspect]
     Active Substance: RITUXIMAB
     Indication: Diffuse large B-cell lymphoma stage IV
     Dosage: 570 MG, EVERY 3 WEEKS
     Route: 042
     Dates: start: 20240423, end: 20240903
  13. RITUXIMAB [Suspect]
     Active Substance: RITUXIMAB
     Dosage: 570 MG, EVERY 3 WEEKS
     Route: 042
     Dates: start: 20240813
  14. VINCRISTINE [Suspect]
     Active Substance: VINCRISTINE
     Indication: Diffuse large B-cell lymphoma stage IV
     Dosage: 2 MG, EVERY 3 WEEKS
     Route: 042
     Dates: start: 20240423, end: 20240903
  15. VINCRISTINE [Suspect]
     Active Substance: VINCRISTINE
     Dosage: 2 MG, EVERY 3 WEEKS
     Route: 042
     Dates: start: 20240813
  16. METHYLPREDNISOLONE [Suspect]
     Active Substance: METHYLPREDNISOLONE
     Indication: Diffuse large B-cell lymphoma stage IV
     Dosage: 100 MG, TOTAL
     Route: 042
     Dates: start: 20240903, end: 20240903
  17. BACTRIM [Concomitant]
     Active Substance: SULFAMETHOXAZOLE\TRIMETHOPRIM
     Indication: Antibiotic prophylaxis
     Dosage: 800/160 MG, 3/WEEKS
     Route: 065
     Dates: start: 20240416
  18. BACTRIM [Concomitant]
     Active Substance: SULFAMETHOXAZOLE\TRIMETHOPRIM
     Dosage: 800/160 MG, 3/WEEKS
     Route: 065
     Dates: start: 20240807
  19. FRESUBIN [Concomitant]
     Active Substance: AMINO ACIDS\DEXTROSE\ELECTROLYTES NOS\SOYBEAN OIL\VITAMINS
     Indication: Decreased appetite
     Dosage: 50 ML, EVERY 1 DAYS
     Route: 065
     Dates: start: 20240508
  20. IMODIUM [Concomitant]
     Active Substance: LOPERAMIDE HYDROCHLORIDE
     Indication: Prophylaxis against diarrhoea
     Dosage: 2 ML, AS NECESSARY
     Route: 065
     Dates: start: 20240423
  21. SODIUM PICOSULFATE [Concomitant]
     Active Substance: SODIUM PICOSULFATE
     Indication: Constipation prophylaxis
     Dosage: 20 GTT, AS NECESSARY
     Route: 065
     Dates: start: 20240423
  22. PANTOPRAZOLE [Concomitant]
     Active Substance: PANTOPRAZOLE
     Indication: Prophylaxis against gastrointestinal ulcer
     Dosage: 40 MG, EVERY 1 DAYS
     Route: 065
     Dates: start: 20240605
  23. PANTOZOL [Concomitant]
     Active Substance: PANTOPRAZOLE SODIUM
     Indication: Prophylaxis against gastrointestinal ulcer
     Dosage: 40 MG, 2/DAYS
     Route: 065
     Dates: start: 20240424
  24. PAROXETINE [Concomitant]
     Active Substance: PAROXETINE
     Indication: Depression
     Dosage: 20 MG, EVERY 1 DAYS, (START DATE: 2021)
     Route: 065
  25. Paspertin [Concomitant]
     Indication: Prophylaxis of nausea and vomiting
     Dosage: 10 MG, AS NECESSARY
     Route: 065
     Dates: start: 20240423
  26. Paspertin [Concomitant]
     Indication: Nausea
     Dosage: 10 MG, 2/DAYS
     Route: 065
     Dates: start: 20240507
  27. VALTREX [Concomitant]
     Active Substance: VALACYCLOVIR HYDROCHLORIDE
     Indication: Antiviral prophylaxis
     Dosage: 500 MG, 2/DAYS
     Route: 065
     Dates: start: 20240604
  28. XARELTO [Concomitant]
     Active Substance: RIVAROXABAN
     Indication: Thrombosis prophylaxis
     Dosage: 10 MG, EVERY 1 DAYS
     Route: 065
     Dates: start: 20240423
  29. ALLOPURINOL [Concomitant]
     Active Substance: ALLOPURINOL
     Indication: Renal disorder prophylaxis
     Dosage: 300 MG, EVERY 1 DAYS
     Route: 065
     Dates: start: 20240416
  30. PEGFILGRASTIM [Concomitant]
     Active Substance: PEGFILGRASTIM
     Indication: Prophylaxis
     Dosage: 1 DOSAGE FORM 1 SYRINGE, EVERY 3 WEEKS
     Route: 065
     Dates: start: 20240426
  31. FOLIC ACID [Concomitant]
     Active Substance: FOLIC ACID
     Indication: Vitamin supplementation
     Dosage: 5 MG, EVERY 1 DAYS
     Route: 065
     Dates: start: 20240808
  32. AMLODIPINE [Concomitant]
     Active Substance: AMLODIPINE BESYLATE
     Indication: Hypertension
     Dosage: 5 MG, AS NECESSARY
     Route: 065
     Dates: start: 20241004
  33. ENOXAPARIN SODIUM [Concomitant]
     Active Substance: ENOXAPARIN SODIUM
     Indication: Thrombosis prophylaxis
     Dosage: 40 MG, EVERY 1 DAYS
     Route: 065
     Dates: start: 20241004
  34. DOMPERIDONE [Concomitant]
     Active Substance: DOMPERIDONE
     Indication: Prophylaxis of nausea and vomiting
     Dosage: 10 MG, AS NECESSARY
     Route: 065
     Dates: start: 20241004
  35. FRESUBIN PROTEIN ENERGY [Concomitant]
     Indication: Decreased appetite
     Dosage: 50 ML, EVERY 1 DAYS
     Route: 065
     Dates: start: 20240508
  36. IMODIUM [Concomitant]
     Active Substance: LOPERAMIDE HYDROCHLORIDE
     Indication: Prophylaxis against diarrhoea
     Dosage: 2 MG, AS NECESSARY
     Route: 065
     Dates: start: 20240423
  37. KONAKION [Concomitant]
     Active Substance: PHYTONADIONE
     Indication: Vitamin supplementation
     Dosage: 10 MG, AS NECESSARY
     Route: 065
     Dates: start: 20241004
  38. Novalgin [Concomitant]
     Indication: Pain prophylaxis
     Dosage: 500 MG, AS NECESSARY
     Route: 065
     Dates: start: 20241004
  39. VITAMINS [Concomitant]
     Active Substance: VITAMINS
     Indication: Parenteral nutrition
     Dosage: 1 AMPOULE, EVERY 1 DAYS
     Route: 065
     Dates: start: 20240730
  40. VALACYCLOVIR HYDROCHLORIDE [Concomitant]
     Active Substance: VALACYCLOVIR HYDROCHLORIDE
     Indication: Antiviral prophylaxis
     Dosage: 500 MG, 2/DAYS
     Route: 065
     Dates: start: 20240806
  41. ERGOCALCIFEROL\PHYTONADIONE\RETINOL\TOCOPHEROL [Concomitant]
     Active Substance: ERGOCALCIFEROL\PHYTONADIONE\RETINOL\TOCOPHEROL
     Indication: Parenteral nutrition
     Dosage: 1 AMPULE, EVERY 1 DAYS
     Route: 065
     Dates: start: 20240730
  42. B BRAUN OMEGAFLEX [Concomitant]
     Indication: Decreased appetite
     Dosage: 1875 ML, EVERY 1 DAYS
     Route: 065
     Dates: start: 20240914

REACTIONS (5)
  - Duodenal stenosis [Recovered/Resolved]
  - Staphylococcal bacteraemia [Recovered/Resolved]
  - Device related infection [Not Recovered/Not Resolved]
  - Klebsiella infection [Not Recovered/Not Resolved]
  - Pneumonia aspiration [Recovered/Resolved]

NARRATIVE: CASE EVENT DATE: 20240722
